FAERS Safety Report 7816563-X (Version None)
Quarter: 2011Q4

REPORT INFORMATION
  Report Type: 
  Country: None (occurrence: None)
  Receive Date: 20111017
  Receipt Date: 20111012
  Transmission Date: 20120403
  Serious: Yes (Hospitalization, Other)
  Sender: FDA-Public Use
  Company Number: HU-PFIZER INC-2011014987

PATIENT
  Age: 56 Year
  Sex: Male
  Weight: 60 kg

DRUGS (12)
  1. PENTOXIFYLLINE [Concomitant]
     Dosage: UNK
  2. CHINOTAL [Concomitant]
     Dosage: UNK
  3. BUPRENORPHINE [Concomitant]
     Dosage: UNK
     Route: 062
  4. NOACID [Concomitant]
     Dosage: UNK
  5. PENTOSANPOLYSULFAT SP 54 [Concomitant]
     Dosage: UNK
  6. SUTENT [Suspect]
     Indication: METASTATIC RENAL CELL CARCINOMA
     Dosage: 50 MG, 1X/DAY
     Route: 048
     Dates: start: 20100305, end: 20101210
  7. ACCUZIDE [Concomitant]
     Dosage: UNK
  8. NEBIVOLOL [Concomitant]
     Dosage: UNK
  9. DICLOFENAC SODIUM [Concomitant]
     Dosage: UNK
  10. ALPRAZOLAM [Concomitant]
     Dosage: UNK
  11. MEGESTROL [Concomitant]
     Dosage: UNK
  12. CLOPIDOGREL [Concomitant]
     Dosage: UNK

REACTIONS (6)
  - LEUKOPENIA [None]
  - COUGH [None]
  - PNEUMONIA [None]
  - CHEST PAIN [None]
  - ANAEMIA [None]
  - DYSPNOEA [None]
